FAERS Safety Report 23791084 (Version 2)
Quarter: 2024Q2

REPORT INFORMATION
  Report Type: Report from Study
  Country: US (occurrence: US)
  Receive Date: 20240428
  Receipt Date: 20240617
  Transmission Date: 20240715
  Serious: No
  Sender: FDA-Public Use
  Company Number: US-ACADIA PHARMACEUTICALS INC.-ACA-2024-PIM-001692

PATIENT
  Sex: Male

DRUGS (12)
  1. NUPLAZID [Suspect]
     Active Substance: PIMAVANSERIN TARTRATE
     Indication: Parkinson^s disease psychosis
     Dosage: 34 MILLIGRAM, QD
     Route: 048
     Dates: start: 202310
  2. NUPLAZID [Suspect]
     Active Substance: PIMAVANSERIN TARTRATE
     Indication: Parkinson^s disease
     Dosage: 34 MILLIGRAM, QD
     Route: 048
  3. ASPIRIN [Concomitant]
     Active Substance: ASPIRIN
  4. GLIMEPIRIDE [Concomitant]
     Active Substance: GLIMEPIRIDE
  5. CLOPIDOGREL [Concomitant]
     Active Substance: CLOPIDOGREL BISULFATE
  6. QUETIAPINE [Concomitant]
     Active Substance: QUETIAPINE
  7. MAGNESIUM [Concomitant]
     Active Substance: MAGNESIUM
  8. CARBIDOPA LEVODOPA [Concomitant]
     Active Substance: CARBIDOPA\LEVODOPA
  9. LEVOTHYROXINE [Concomitant]
     Active Substance: LEVOTHYROXINE\LEVOTHYROXINE SODIUM
  10. METFORMIN [Concomitant]
     Active Substance: METFORMIN HYDROCHLORIDE
  11. PRAVASTATIN [Concomitant]
     Active Substance: PRAVASTATIN
  12. STOOL SOFTENER (DOCUSATE) [Concomitant]
     Active Substance: DOCUSATE

REACTIONS (2)
  - Hallucination, visual [Unknown]
  - Drug ineffective [Unknown]
